FAERS Safety Report 15735015 (Version 1)
Quarter: 2018Q4

REPORT INFORMATION
  Report Type: Spontaneous
  Country: BE (occurrence: BE)
  Receive Date: 20181218
  Receipt Date: 20181218
  Transmission Date: 20190205
  Serious: Yes (Other)
  Sender: FDA-Public Use
  Company Number: BE-EPIC PHARMA LLC-2018EPC00489

PATIENT
  Age: 27 Year
  Sex: Male

DRUGS (12)
  1. PHENYTOIN. [Suspect]
     Active Substance: PHENYTOIN
     Indication: STATUS EPILEPTICUS
     Dosage: 750 MG, ONCE
     Route: 042
  2. LEVETIRACETAM. [Suspect]
     Active Substance: LEVETIRACETAM
     Dosage: 1 G, 4X/DAY
     Route: 042
  3. PROPOFOL. [Concomitant]
     Active Substance: PROPOFOL
     Dosage: 2 MG/KG, CONTINUOUS/HR
     Route: 065
  4. PHENYTOIN. [Suspect]
     Active Substance: PHENYTOIN
     Dosage: 100 MG, 3X/DAY (DAY 11)
     Route: 042
  5. LEVETIRACETAM. [Suspect]
     Active Substance: LEVETIRACETAM
     Dosage: 1 G, 3X/DAY
     Route: 042
  6. MIDAZOLAM [Concomitant]
     Active Substance: MIDAZOLAM HYDROCHLORIDE
     Dosage: 15 MG OVER 24 HOURS
     Route: 065
  7. PHENYTOIN. [Suspect]
     Active Substance: PHENYTOIN
     Dosage: 250 MG, 2X/DAY
     Route: 042
  8. PHENYTOIN. [Suspect]
     Active Substance: PHENYTOIN
     Dosage: 100 MG, 2X/DAY (DAY 12)
     Route: 042
  9. VALPROIC ACID. [Suspect]
     Active Substance: VALPROIC ACID
     Indication: STATUS EPILEPTICUS
     Dosage: 1200 MG, OVER 24 HOURS
     Route: 042
  10. PROPOFOL. [Concomitant]
     Active Substance: PROPOFOL
     Dosage: 3 MG/KG, CONTINUOUS/HR
     Route: 065
  11. PHENYTOIN. [Suspect]
     Active Substance: PHENYTOIN
     Dosage: 100 MG, 1X/DAY (DAY 13)
     Route: 042
  12. LEVETIRACETAM. [Suspect]
     Active Substance: LEVETIRACETAM
     Indication: STATUS EPILEPTICUS
     Dosage: 1 G, 2X/DAY
     Route: 042

REACTIONS (1)
  - Rhabdomyolysis [Recovered/Resolved]
